FAERS Safety Report 11769494 (Version 2)
Quarter: 2016Q1

REPORT INFORMATION
  Report Type: Spontaneous
  Country: FR (occurrence: FR)
  Receive Date: 20151123
  Receipt Date: 20160316
  Transmission Date: 20160525
  Serious: Yes (Death)
  Sender: FDA-Public Use
  Company Number: FR-TEVA-609490ISR

PATIENT
  Age: 80 Year
  Sex: Female

DRUGS (1)
  1. DIAZEPAM 10 MG [Suspect]
     Active Substance: DIAZEPAM
     Route: 065

REACTIONS (1)
  - Death [Fatal]
